FAERS Safety Report 6052615-5 (Version None)
Quarter: 2009Q1

REPORT INFORMATION
  Report Type: 
  Country: None (occurrence: None)
  Receive Date: 20090127
  Receipt Date: 20090116
  Transmission Date: 20090719
  Serious: Yes (Death)
  Sender: FDA-Public Use
  Company Number: US-RANBAXY-2009RR-20888

PATIENT
  Age: 56 Year
  Sex: Female

DRUGS (3)
  1. ACETAMINOPHEN [Suspect]
     Indication: INTENTIONAL DRUG MISUSE
     Route: 048
  2. IBUPROFEN TABLETS [Suspect]
     Indication: INTENTIONAL DRUG MISUSE
     Route: 048
  3. CYCLOBENZAPRINE HCL [Suspect]
     Indication: INTENTIONAL DRUG MISUSE
     Route: 048

REACTIONS (1)
  - INTENTIONAL DRUG MISUSE [None]
